FAERS Safety Report 7771513-X (Version None)
Quarter: 2011Q3

REPORT INFORMATION
  Report Type: 
  Country: None (occurrence: None)
  Receive Date: 20110922
  Receipt Date: 20110915
  Transmission Date: 20111222
  Serious: Yes (Hospitalization, Disabling)
  Sender: FDA-Public Use
  Company Number: FR-PFIZER INC-2009245144

PATIENT
  Age: 68 Year
  Sex: Male
  Weight: 56 kg

DRUGS (7)
  1. SUNITINIB MALATE [Suspect]
     Indication: PROSTATE CANCER
     Dosage: 37.5 MG, 1X/DAY
     Route: 048
     Dates: start: 20090529, end: 20090715
  2. ZOLPIDEM [Concomitant]
     Indication: INSOMNIA
  3. BLINDED NO SUBJECT DRUG [Suspect]
     Indication: PROSTATE CANCER
     Dosage: 37.5 MG, 1X/DAY
     Route: 048
     Dates: start: 20090529, end: 20090715
  4. TRIPTORELIN [Concomitant]
     Indication: PROSTATE CANCER
     Dosage: UNK
  5. BLINDED PLACEBO [Suspect]
     Indication: PROSTATE CANCER
     Dosage: 37.5 MG, 1X/DAY
     Route: 048
     Dates: start: 20090529, end: 20090715
  6. PREDNISONE [Suspect]
     Indication: PROSTATE CANCER
     Dosage: 5 MG, 2X/DAY
     Route: 048
     Dates: start: 20090529, end: 20090715
  7. FLUOXETINE [Concomitant]
     Indication: ANXIETY
     Dosage: UNK
     Dates: start: 20070101

REACTIONS (1)
  - GENERAL PHYSICAL HEALTH DETERIORATION [None]
